FAERS Safety Report 15580654 (Version 1)
Quarter: 2018Q4

REPORT INFORMATION
  Report Type: Spontaneous
  Country: GR (occurrence: GR)
  Receive Date: 20181102
  Receipt Date: 20181102
  Transmission Date: 20190205
  Serious: Yes (Other)
  Sender: FDA-Public Use
  Company Number: GR-MYLANLABS-2018M1080965

PATIENT
  Age: 58 Year

DRUGS (1)
  1. RYTHMONORM 150MG FILM COATED TABLETS [Suspect]
     Active Substance: PROPAFENONE HYDROCHLORIDE
     Indication: PALPITATIONS
     Dosage: 150 MG, QH (THREE TABLETS EVERY HOUR)

REACTIONS (3)
  - Chest pain [Unknown]
  - Tachycardia [Unknown]
  - Intentional product misuse [Unknown]
